FAERS Safety Report 8214890-8 (Version None)
Quarter: 2012Q1

REPORT INFORMATION
  Report Type: 
  Country: None (occurrence: None)
  Receive Date: 20120316
  Receipt Date: 20120305
  Transmission Date: 20120608
  Serious: No
  Sender: FDA-Public Use
  Company Number: US-B.I. PHARMACEUTICALS,INC./RIDGEFIELD-2012-BP-04181BP

PATIENT
  Sex: Female

DRUGS (4)
  1. SPIRIVA [Suspect]
     Indication: CHRONIC OBSTRUCTIVE PULMONARY DISEASE
     Dosage: 18 MCG
     Route: 055
     Dates: start: 20100801
  2. PLAVIX [Concomitant]
     Indication: THROMBOSIS
     Route: 048
     Dates: start: 20080101
  3. NEXIUM [Concomitant]
     Indication: GASTRIC DISORDER
     Route: 048
     Dates: start: 20080101
  4. COMBIVENT [Suspect]
     Indication: CHRONIC OBSTRUCTIVE PULMONARY DISEASE
     Route: 055
     Dates: start: 20000101

REACTIONS (7)
  - ABDOMINAL DISCOMFORT [None]
  - TREMOR [None]
  - EYELID MARGIN CRUSTING [None]
  - BLOOD CHOLESTEROL INCREASED [None]
  - BRONCHITIS [None]
  - GLOSSODYNIA [None]
  - DYSPNOEA [None]
